FAERS Safety Report 6270795-3 (Version None)
Quarter: 2009Q3

REPORT INFORMATION
  Report Type: 
  Country: None (occurrence: None)
  Receive Date: 20090716
  Receipt Date: 20090713
  Transmission Date: 20100115
  Serious: Yes (Hospitalization)
  Sender: FDA-Public Use
  Company Number: JP-WYE-H10148009

PATIENT
  Age: 80 Year
  Sex: Female

DRUGS (3)
  1. ZOSYN [Suspect]
     Indication: PNEUMONIA
     Route: 041
  2. AMINOACETIC ACID/CALCIUM GLYCEROPHOSPHATE/CARNITINE HYDROCHLORIDE/LEUC [Concomitant]
     Dosage: UNKNOWN
  3. DONEPEZIL HYDROCHLORIDE [Concomitant]
     Dosage: UNKNOWN

REACTIONS (1)
  - PAIN IN EXTREMITY [None]
